FAERS Safety Report 16289928 (Version 1)
Quarter: 2019Q2

REPORT INFORMATION
  Report Type: Spontaneous
  Country: US (occurrence: US)
  Receive Date: 20190509
  Receipt Date: 20190509
  Transmission Date: 20190711
  Serious: Yes (Hospitalization)
  Sender: FDA-Public Use
  Company Number: US-JNJFOC-20190508884

PATIENT
  Age: 64 Year
  Sex: Male

DRUGS (1)
  1. INVOKANA [Suspect]
     Active Substance: CANAGLIFLOZIN
     Indication: PRODUCT USED FOR UNKNOWN INDICATION
     Route: 048
     Dates: end: 201807

REACTIONS (5)
  - Extremity necrosis [Unknown]
  - Injury [Unknown]
  - Osteomyelitis [Unknown]
  - Gangrene [Unknown]
  - Limb amputation [Unknown]

NARRATIVE: CASE EVENT DATE: 201807
